FAERS Safety Report 9838628 (Version 1)
Quarter: 2014Q1

REPORT INFORMATION
  Report Type: Spontaneous
  Country: CO (occurrence: None)
  Receive Date: 20140116
  Receipt Date: 20140116
  Transmission Date: 20141002
  Serious: Yes (Other)
  Sender: FDA-Public Use
  Company Number: DSU-2014-00028

PATIENT
  Sex: Male

DRUGS (1)
  1. OLMETEC ANLO [Suspect]
     Indication: BLOOD PRESSURE MANAGEMENT
     Route: 048
     Dates: start: 201312

REACTIONS (2)
  - Cerebral infarction [None]
  - Drug ineffective [None]
